FAERS Safety Report 8673277 (Version 2)
Quarter: 2013Q4

REPORT INFORMATION
  Report Type: Spontaneous
  Country: US (occurrence: US)
  Receive Date: 20120719
  Receipt Date: 20131101
  Transmission Date: 20140711
  Serious: Yes (Hospitalization, Other)
  Sender: FDA-Public Use
  Company Number: US-009507513-1206USA02241

PATIENT
  Age: 41 Year
  Sex: Female

DRUGS (8)
  1. JANUVIA [Suspect]
     Dosage: UNK
     Route: 048
     Dates: end: 201205
  2. LANTUS [Concomitant]
     Indication: TYPE 2 DIABETES MELLITUS
     Dosage: 20 UNITS AT HS
     Route: 058
     Dates: start: 201112
  3. LANTUS [Concomitant]
     Dosage: 25 UNITS AT 8PM
     Route: 058
     Dates: start: 201112
  4. METFORMIN HYDROCHLORIDE [Concomitant]
     Indication: TYPE 2 DIABETES MELLITUS
     Dosage: 500MG 2 TABS BIB
     Route: 048
  5. CRESTOR [Concomitant]
     Dosage: 20 MG DAILY
     Route: 048
  6. FENOFIBRATE [Concomitant]
     Indication: HYPERLIPIDAEMIA
     Dosage: 160 MG DAILY AT HS
     Route: 048
  7. RAMIPRIL [Concomitant]
     Indication: HYPERTENSION
     Dosage: 10 MG BID
     Route: 048
  8. LOSARTAN POTASSIUM [Concomitant]
     Indication: HYPERTENSION
     Dosage: 50 MG DAILY
     Route: 048

REACTIONS (3)
  - Pancreatitis acute [Recovered/Resolved]
  - Metabolic syndrome [Unknown]
  - Osteoarthritis [Unknown]
